FAERS Safety Report 5166992-0 (Version None)
Quarter: 2006Q4

REPORT INFORMATION
  Report Type: 
  Country: None (occurrence: None)
  Receive Date: 20061129
  Receipt Date: 20061116
  Transmission Date: 20070319
  Serious: Yes (Hospitalization, Other)
  Sender: FDA-Public Use
  Company Number: 2006142197

PATIENT
  Age: 58 Year
  Sex: Female

DRUGS (3)
  1. PREDNISONE TAB [Suspect]
     Dosage: 5 MG, 1 IN 1 D, ORAL
     Route: 048
     Dates: start: 20051111
  2. ENBREL [Suspect]
     Indication: RHEUMATOID ARTHRITIS
     Dosage: 50 MG (25 MG, 2 IN 1 WK), SUBCUTANEOUS
     Route: 058
     Dates: start: 20051111
  3. IBUPROFEN [Suspect]
     Dosage: 1 IN 1 AS NECESSARY

REACTIONS (8)
  - ALANINE AMINOTRANSFERASE INCREASED [None]
  - ASPARTATE AMINOTRANSFERASE INCREASED [None]
  - ASTHENIA [None]
  - BLOOD ALKALINE PHOSPHATASE INCREASED [None]
  - CHEST PAIN [None]
  - CHOLELITHIASIS [None]
  - OESOPHAGEAL PAIN [None]
  - SUPRAVENTRICULAR EXTRASYSTOLES [None]
